FAERS Safety Report 19161504 (Version 2)
Quarter: 2021Q2

REPORT INFORMATION
  Report Type: Report from Study
  Country: US (occurrence: US)
  Receive Date: 20210421
  Receipt Date: 20210513
  Transmission Date: 20210717
  Serious: Yes (Other)
  Sender: FDA-Public Use
  Company Number: US-TAIHO ONCOLOGY  INC-EU-2021-01152

PATIENT
  Age: 73 Year
  Sex: Female

DRUGS (12)
  1. LEVOTHYROXIN [Concomitant]
     Active Substance: LEVOTHYROXINE
  2. LISINOPRIL. [Concomitant]
     Active Substance: LISINOPRIL
  3. ACETAMIN [Concomitant]
     Active Substance: ACETAMINOPHEN
  4. RESTORIL [Concomitant]
     Active Substance: TEMAZEPAM
  5. MAGNESIUM?OX [Concomitant]
  6. POTASSIUM GEL [Concomitant]
  7. LONSURF [Suspect]
     Active Substance: TIPIRACIL HYDROCHLORIDE\TRIFLURIDINE
     Indication: COLON CANCER
     Dosage: CURRENT CYCLE UNKNOWN
     Route: 048
     Dates: start: 20210324
  8. COVID?19 VACCINE NOS. [Suspect]
     Active Substance: COVID-19 VACCINE NOS
     Indication: PRODUCT USED FOR UNKNOWN INDICATION
     Route: 065
  9. LOPERAMIDE [Concomitant]
     Active Substance: LOPERAMIDE
  10. GABAPENTIN. [Concomitant]
     Active Substance: GABAPENTIN
  11. ATENOLOL. [Concomitant]
     Active Substance: ATENOLOL
  12. MONTELUKAST [Concomitant]
     Active Substance: MONTELUKAST SODIUM

REACTIONS (7)
  - Dehydration [Unknown]
  - Fatigue [Unknown]
  - Constipation [Recovered/Resolved]
  - Diarrhoea [Unknown]
  - Decreased appetite [Unknown]
  - Illness [Unknown]
  - Dry mouth [Unknown]

NARRATIVE: CASE EVENT DATE: 20210413
